FAERS Safety Report 22113779 (Version 1)
Quarter: 2023Q1

REPORT INFORMATION
  Report Type: Spontaneous
  Country: FR (occurrence: FR)
  Receive Date: 20230320
  Receipt Date: 20230320
  Transmission Date: 20230417
  Serious: Yes (Other)
  Sender: FDA-Public Use
  Company Number: FR-AFSSAPS-PC2023000289

PATIENT
  Age: 25 Year
  Sex: Male
  Weight: 65 kg

DRUGS (2)
  1. EFAVIRENZ\EMTRICITABINE\TENOFOVIR DISOPROXIL FUMARATE [Suspect]
     Active Substance: EFAVIRENZ\EMTRICITABINE\TENOFOVIR DISOPROXIL FUMARATE
     Indication: Prophylaxis against HIV infection
     Dosage: UNK
     Route: 048
     Dates: start: 20230213, end: 20230228
  2. EMTRICITABINE\TENOFOVIR DISOPROXIL SUCCINATE [Suspect]
     Active Substance: EMTRICITABINE\TENOFOVIR DISOPROXIL SUCCINATE
     Indication: Prophylaxis against HIV infection
     Dosage: UNK
     Route: 048
     Dates: start: 20230213, end: 20230228

REACTIONS (7)
  - Abdominal pain [Recovering/Resolving]
  - Diarrhoea [Recovering/Resolving]
  - Depressed mood [Recovering/Resolving]
  - Hyperhidrosis [Recovering/Resolving]
  - Vomiting [Recovering/Resolving]
  - Vertigo [Recovering/Resolving]
  - Product dispensing error [Recovered/Resolved]

NARRATIVE: CASE EVENT DATE: 20230222
